FAERS Safety Report 20108638 (Version 1)
Quarter: 2021Q4

REPORT INFORMATION
  Report Type: Spontaneous
  Country: US (occurrence: US)
  Receive Date: 20211124
  Receipt Date: 20211124
  Transmission Date: 20220303
  Serious: Yes (Other)
  Sender: FDA-Public Use
  Company Number: US-SA-SAC20211122001361

PATIENT
  Age: 79 Year
  Sex: Male

DRUGS (1)
  1. LANTUS [Suspect]
     Active Substance: INSULIN GLARGINE
     Dosage: UNK
     Route: 065

REACTIONS (5)
  - Serratia infection [Unknown]
  - Soft tissue infection [Unknown]
  - Injection site pain [Unknown]
  - Injection site nodule [Recovered/Resolved]
  - Injection site ulcer [Recovered/Resolved]
